FAERS Safety Report 20991551 (Version 1)
Quarter: 2022Q2

REPORT INFORMATION
  Report Type: Spontaneous
  Country: US (occurrence: None)
  Receive Date: 20220621
  Receipt Date: 20220621
  Transmission Date: 20220721
  Serious: No
  Sender: FDA-Public Use
  Company Number: None

PATIENT
  Age: 33 Year
  Sex: Female

DRUGS (1)
  1. BEBTELOVIMAB [Suspect]
     Active Substance: BEBTELOVIMAB

REACTIONS (4)
  - Pharyngeal swelling [None]
  - Swelling face [None]
  - Dyspnoea [None]
  - Maternal exposure during pregnancy [None]

NARRATIVE: CASE EVENT DATE: 20220607
